FAERS Safety Report 17542105 (Version 2)
Quarter: 2020Q3

REPORT INFORMATION
  Report Type: Report from Study
  Country: US (occurrence: US)
  Receive Date: 20200313
  Receipt Date: 20200813
  Transmission Date: 20201102
  Serious: Yes (Hospitalization)
  Sender: FDA-Public Use
  Company Number: US-BIOGEN-2020BI00846842

PATIENT
  Sex: Male

DRUGS (2)
  1. TECFIDERA [Suspect]
     Active Substance: DIMETHYL FUMARATE
     Route: 065
     Dates: start: 20200302
  2. TECFIDERA [Suspect]
     Active Substance: DIMETHYL FUMARATE
     Indication: MULTIPLE SCLEROSIS
     Route: 065
     Dates: start: 20170711, end: 20171231

REACTIONS (4)
  - Haematuria [Not Recovered/Not Resolved]
  - Urinary bladder haemorrhage [Unknown]
  - Urinary bladder rupture [Not Recovered/Not Resolved]
  - Septic shock [Not Recovered/Not Resolved]
